FAERS Safety Report 10991566 (Version 1)
Quarter: 2015Q2

REPORT INFORMATION
  Report Type: Spontaneous
  Country: US (occurrence: US)
  Receive Date: 20150406
  Receipt Date: 20150406
  Transmission Date: 20150821
  Serious: Yes (Hospitalization)
  Sender: FDA-Public Use
  Company Number: US-009507513-1504USA002405

PATIENT
  Age: 20 Year
  Sex: Female

DRUGS (1)
  1. CORICIDIN HBP COUGH AND COLD [Suspect]
     Active Substance: CHLORPHENIRAMINE MALEATE\DEXTROMETHORPHAN HYDROBROMIDE
     Indication: PRODUCT USED FOR UNKNOWN INDICATION
     Dosage: UNK, UNKNOWN
     Route: 048

REACTIONS (19)
  - Aggression [Recovered/Resolved]
  - Irritability [Recovered/Resolved]
  - Anxiety [Recovered/Resolved]
  - Speech disorder [Recovered/Resolved]
  - Sleep disorder [Recovered/Resolved]
  - Grandiosity [Recovered/Resolved]
  - Affect lability [Recovered/Resolved]
  - Cognitive disorder [Recovered/Resolved]
  - Abnormal behaviour [Recovered/Resolved]
  - Screaming [Recovered/Resolved]
  - Energy increased [Recovered/Resolved]
  - Substance-induced psychotic disorder [Recovered/Resolved]
  - Agitation [Recovered/Resolved]
  - Delusion [Recovered/Resolved]
  - Hallucination, auditory [Recovered/Resolved]
  - Pressure of speech [Recovered/Resolved]
  - Overdose [Unknown]
  - Paranoia [Recovered/Resolved]
  - Fear [Recovered/Resolved]
